FAERS Safety Report 9095938 (Version 1)
Quarter: 2013Q1

REPORT INFORMATION
  Report Type: Spontaneous
  Country: US (occurrence: US)
  Receive Date: 20130220
  Receipt Date: 20130220
  Transmission Date: 20140127
  Serious: No
  Sender: FDA-Public Use
  Company Number: US-BAYER-2013-018729

PATIENT
  Age: 42 Year
  Sex: Female

DRUGS (1)
  1. ULTRAVIST [Suspect]
     Indication: COMPUTERISED TOMOGRAM ABDOMEN
     Dosage: 130 ML, ONCE
     Route: 042
     Dates: start: 20130212, end: 2013

REACTIONS (2)
  - Photophobia [Recovered/Resolved]
  - Headache [Recovered/Resolved]
